FAERS Safety Report 13933735 (Version 3)
Quarter: 2018Q2

REPORT INFORMATION
  Report Type: Spontaneous
  Country: US (occurrence: US)
  Receive Date: 20170904
  Receipt Date: 20180502
  Transmission Date: 20180711
  Serious: Yes (Hospitalization, Other)
  Sender: FDA-Public Use
  Company Number: US-DSJP-DSU-2017-134087

PATIENT

DRUGS (1)
  1. BENICAR [Suspect]
     Active Substance: OLMESARTAN MEDOXOMIL
     Indication: PRODUCT USED FOR UNKNOWN INDICATION
     Dosage: 5 MG, UNK
     Dates: end: 20150123

REACTIONS (11)
  - Diverticulitis [Unknown]
  - Gastrooesophageal reflux disease [Unknown]
  - Hiatus hernia [Unknown]
  - Inflammatory bowel disease [Recovered/Resolved]
  - Cholecystitis acute [Not Recovered/Not Resolved]
  - Helicobacter gastritis [Unknown]
  - Weight decreased [Unknown]
  - Haemorrhoids [Unknown]
  - Large intestine polyp [Not Recovered/Not Resolved]
  - Diverticulum [Unknown]
  - Irritable bowel syndrome [Unknown]

NARRATIVE: CASE EVENT DATE: 20090107
